FAERS Safety Report 4836414-5 (Version None)
Quarter: 2005Q4

REPORT INFORMATION
  Report Type: 
  Country: None (occurrence: None)
  Receive Date: 20051118
  Receipt Date: 20051116
  Transmission Date: 20060501
  Serious: Yes (Life-Threatening, Hospitalization)
  Sender: FDA-Public Use
  Company Number: GBWYE528623MAR05

PATIENT
  Age: 17 Year
  Sex: Male

DRUGS (8)
  1. EFEXOR (VENLAFAXIEN HYDROCHLORIDE, TABLET) [Suspect]
     Indication: DEPRESSION
     Dosage: 3.75 MG 2X PER 1 DAY, 75 MG 2X PER 1 DAY, 375 MG 1X PER 1 DAY, 75 MG 1X PER 1 DAY
     Route: 048
     Dates: start: 20050301, end: 20050306
  2. EFEXOR (VENLAFAXIEN HYDROCHLORIDE, TABLET) [Suspect]
     Indication: DEPRESSION
     Dosage: 3.75 MG 2X PER 1 DAY, 75 MG 2X PER 1 DAY, 375 MG 1X PER 1 DAY, 75 MG 1X PER 1 DAY
     Route: 048
     Dates: start: 20050307, end: 20050407
  3. EFEXOR (VENLAFAXIEN HYDROCHLORIDE, TABLET) [Suspect]
     Indication: DEPRESSION
     Dosage: 3.75 MG 2X PER 1 DAY, 75 MG 2X PER 1 DAY, 375 MG 1X PER 1 DAY, 75 MG 1X PER 1 DAY
     Route: 048
     Dates: start: 20050407, end: 20050620
  4. EFEXOR (VENLAFAXIEN HYDROCHLORIDE, TABLET) [Suspect]
     Indication: DEPRESSION
     Dosage: 3.75 MG 2X PER 1 DAY, 75 MG 2X PER 1 DAY, 375 MG 1X PER 1 DAY, 75 MG 1X PER 1 DAY
     Route: 048
     Dates: start: 20050621
  5. CANNABIS (CANNABIS) [Suspect]
  6. EFFEXOR XR [Suspect]
     Indication: DEPRESSION
     Dosage: 375 MG1X PER 1 DAY, 75 MG FREQUENCY UNKNOWN
     Route: 048
     Dates: start: 20050101, end: 20050101
  7. EFFEXOR XR [Suspect]
     Indication: DEPRESSION
     Dosage: 375 MG1X PER 1 DAY, 75 MG FREQUENCY UNKNOWN
     Route: 048
     Dates: start: 20050621
  8. FLUOXETINE [Suspect]
     Indication: DEPRESSION
     Dosage: 20 MG 1 X PER 1 DAY
     Dates: start: 20041110, end: 20050301

REACTIONS (7)
  - DEPRESSED MOOD [None]
  - DRUG ABUSER [None]
  - DRUG DOSE OMISSION [None]
  - DRUG INTERACTION [None]
  - DRUG WITHDRAWAL SYNDROME [None]
  - GRAND MAL CONVULSION [None]
  - HYPOMANIA [None]
